FAERS Safety Report 23972145 (Version 4)
Quarter: 2025Q2

REPORT INFORMATION
  Report Type: Spontaneous
  Country: US (occurrence: None)
  Receive Date: 20240613
  Receipt Date: 20250411
  Transmission Date: 20250717
  Serious: Yes (Hospitalization)
  Sender: MDD OPERATIONS
  Company Number: US-MDD US Operations-MDD202304-001760

PATIENT
  Age: 66 Year
  Sex: Female
  Weight: 67.99 kg

DRUGS (22)
  1. APOKYN [Suspect]
     Active Substance: APOMORPHINE HYDROCHLORIDE
     Indication: Parkinson^s disease
     Dates: start: 20211207
  2. APOKYN [Suspect]
     Active Substance: APOMORPHINE HYDROCHLORIDE
     Indication: On and off phenomenon
     Route: 058
  3. APOKYN [Suspect]
     Active Substance: APOMORPHINE HYDROCHLORIDE
     Indication: Dyskinesia
     Route: 058
  4. APOKYN [Suspect]
     Active Substance: APOMORPHINE HYDROCHLORIDE
     Indication: On and off phenomenon
  5. CARBIDOPA\LEVODOPA [Concomitant]
     Active Substance: CARBIDOPA\LEVODOPA
     Indication: Parkinson^s disease
     Dosage: EACH DF OF 25/100 MG
  6. CARBIDOPA\LEVODOPA [Concomitant]
     Active Substance: CARBIDOPA\LEVODOPA
  7. AMANTADINE [Concomitant]
     Active Substance: AMANTADINE
     Indication: Parkinson^s disease
  8. AMANTADINE [Concomitant]
     Active Substance: AMANTADINE
  9. ACETAMINOPHEN\HYDROCODONE [Concomitant]
     Active Substance: ACETAMINOPHEN\HYDROCODONE
  10. LYRICA [Concomitant]
     Active Substance: PREGABALIN
  11. CELEXA [Concomitant]
     Active Substance: CITALOPRAM HYDROBROMIDE
  12. MIRAPEX [Concomitant]
     Active Substance: PRAMIPEXOLE DIHYDROCHLORIDE
  13. CLONAZEPAM [Concomitant]
     Active Substance: CLONAZEPAM
  14. COMTAN [Concomitant]
     Active Substance: ENTACAPONE
  15. CALCIUM\VITAMIN D [Concomitant]
     Active Substance: CALCIUM\VITAMIN D
  16. XARELTO [Concomitant]
     Active Substance: RIVAROXABAN
  17. LOVENOX [Concomitant]
     Active Substance: ENOXAPARIN SODIUM
  18. COLLAGEN [Concomitant]
     Active Substance: COLLAGEN
  19. BIOTIN [Concomitant]
     Active Substance: BIOTIN
  20. BIOTIN [Concomitant]
     Active Substance: BIOTIN
  21. TYLENOL [Concomitant]
     Active Substance: ACETAMINOPHEN
  22. CONSTULOSE [Concomitant]
     Active Substance: LACTULOSE

REACTIONS (8)
  - Spinal operation [Unknown]
  - Infection [Unknown]
  - Heart rate increased [Unknown]
  - Alopecia [Unknown]
  - COVID-19 [Unknown]
  - Incorrect dose administered by device [Unknown]
  - Product dispensing issue [Unknown]
  - Product use in unapproved indication [Unknown]
